FAERS Safety Report 5015442-3 (Version None)
Quarter: 2006Q2

REPORT INFORMATION
  Report Type: 
  Country: None (occurrence: None)
  Receive Date: 20060601
  Receipt Date: 20060518
  Transmission Date: 20061013
  Serious: Yes (Other)
  Sender: FDA-Public Use
  Company Number: PHRM2006FR01631

PATIENT
  Sex: Female

DRUGS (1)
  1. SANDOSTATINE (FOR S.C. INJECT.) [Suspect]
     Indication: PANCREATIC CARCINOMA
     Dosage: 200 UG, QD
     Route: 042

REACTIONS (2)
  - INCORRECT ROUTE OF DRUG ADMINISTRATION [None]
  - INTESTINAL OBSTRUCTION [None]
